FAERS Safety Report 4778938-5 (Version None)
Quarter: 2005Q3

REPORT INFORMATION
  Report Type: 
  Country: None (occurrence: None)
  Receive Date: 20050922
  Receipt Date: 20050913
  Transmission Date: 20060218
  Serious: Yes (Hospitalization, Other)
  Sender: FDA-Public Use
  Company Number: 2005-03426

PATIENT
  Age: 40 Year
  Sex: Male

DRUGS (3)
  1. MIRTAZAPINE [Suspect]
     Indication: INTENTIONAL MISUSE
     Dosage: 1.8 G, SINGLE, ORAL
     Route: 048
     Dates: start: 20050101, end: 20050101
  2. MIRTAZAPINE [Suspect]
     Indication: OVERDOSE
     Dosage: 1.8 G, SINGLE, ORAL
     Route: 048
     Dates: start: 20050101, end: 20050101
  3. ETHANOL (WINE) (ETHANOL) [Suspect]
     Dosage: 2 LITERS, SINGLE, ORAL
     Route: 048
     Dates: start: 20050101, end: 20050101

REACTIONS (3)
  - HEPATITIS [None]
  - OVERDOSE [None]
  - RHABDOMYOLYSIS [None]
